FAERS Safety Report 5269099-7 (Version None)
Quarter: 2007Q1

REPORT INFORMATION
  Report Type: 
  Country: None (occurrence: None)
  Receive Date: 20070314
  Receipt Date: 20070302
  Transmission Date: 20070707
  Serious: Yes (Other)
  Sender: FDA-Public Use
  Company Number: 2006S1002716

PATIENT

DRUGS (1)
  1. HALOPERIDOL [Suspect]
     Dosage: ORAL
     Route: 048

REACTIONS (5)
  - COMA [None]
  - DISCOMFORT [None]
  - DIZZINESS [None]
  - GAIT DISTURBANCE [None]
  - RESTLESSNESS [None]
